FAERS Safety Report 6127416-X (Version None)
Quarter: 2009Q1

REPORT INFORMATION
  Report Type: 
  Country: None (occurrence: None)
  Receive Date: 20090323
  Receipt Date: 20090312
  Transmission Date: 20090719
  Serious: Yes (Hospitalization, Other)
  Sender: FDA-Public Use
  Company Number: PHEH2009US02553

PATIENT
  Sex: Female

DRUGS (1)
  1. ZELNORM [Suspect]
     Indication: GASTROINTESTINAL HYPOMOTILITY
     Dosage: 6 MG, BID
     Dates: start: 20060901, end: 20090301

REACTIONS (2)
  - CATHETER SEPSIS [None]
  - INTESTINAL PERFORATION [None]
